FAERS Safety Report 10445741 (Version 5)
Quarter: 2014Q4

REPORT INFORMATION
  Report Type: Spontaneous
  Country: JP (occurrence: JP)
  Receive Date: 20140910
  Receipt Date: 20141103
  Transmission Date: 20150528
  Serious: Yes (Death, Other)
  Sender: FDA-Public Use
  Company Number: JP-SA-2014SA121343

PATIENT
  Age: 72 Year
  Sex: Male
  Weight: 54 kg

DRUGS (34)
  1. ISOVORIN [Suspect]
     Active Substance: LEUCOVORIN CALCIUM
     Indication: RECTAL CANCER
     Dosage: REGIMEN 2
     Route: 041
     Dates: start: 20081218, end: 20081218
  2. 5-FU [Suspect]
     Active Substance: FLUOROURACIL
     Indication: RECTAL CANCER
     Dosage: REGIMEN 3
     Route: 040
     Dates: start: 20081218, end: 20081218
  3. 5-FU [Suspect]
     Active Substance: FLUOROURACIL
     Indication: RECTAL CANCER
     Dosage: REGIMEN 4
     Route: 041
     Dates: start: 20081218, end: 20081218
  4. TRANSAMIN [Concomitant]
     Active Substance: TRANEXAMIC ACID
     Dates: start: 20081219, end: 20090225
  5. ISOVORIN [Suspect]
     Active Substance: LEUCOVORIN CALCIUM
     Indication: RECTAL CANCER
     Dosage: REGIMEN 6
     Route: 041
     Dates: start: 20090219, end: 20090219
  6. 5-FU [Suspect]
     Active Substance: FLUOROURACIL
     Indication: RECTAL CANCER
     Dosage: REGIMEN 1
     Route: 040
     Dates: start: 20081204, end: 20081204
  7. 5-FU [Suspect]
     Active Substance: FLUOROURACIL
     Indication: RECTAL CANCER
     Dosage: REGIMEN 10
     Route: 041
     Dates: start: 20090205, end: 20090205
  8. NASEA [Concomitant]
     Active Substance: RAMOSETRON HYDROCHLORIDE
     Dates: start: 20081204, end: 20090219
  9. VOLTAREN [Concomitant]
     Active Substance: DICLOFENAC SODIUM
     Dates: start: 20090224, end: 20090224
  10. SULPERAZON [Concomitant]
     Active Substance: CEFOPERAZONE SODIUM\SULBACTAM SODIUM
     Dates: start: 20090225, end: 20090225
  11. ISOVORIN [Suspect]
     Active Substance: LEUCOVORIN CALCIUM
     Indication: RECTAL CANCER
     Dosage: REGIMEN 5
     Route: 041
     Dates: start: 20090205, end: 20090205
  12. ELPLAT [Suspect]
     Active Substance: OXALIPLATIN
     Indication: RECTAL CANCER
     Dosage: REGIMEN 5
     Route: 041
     Dates: start: 20090205, end: 20090205
  13. 5-FU [Suspect]
     Active Substance: FLUOROURACIL
     Indication: RECTAL CANCER
     Dosage: REGIMEN 7
     Route: 040
     Dates: start: 20090122, end: 20090122
  14. NEUTROGIN [Concomitant]
     Active Substance: LENOGRASTIM
     Dates: start: 20081222, end: 20090225
  15. ELPLAT [Suspect]
     Active Substance: OXALIPLATIN
     Indication: RECTAL CANCER
     Dosage: REGIMEN 2
     Route: 041
     Dates: start: 20081218, end: 20081218
  16. AVASTIN [Concomitant]
     Active Substance: BEVACIZUMAB
     Dates: start: 20090122, end: 20090219
  17. ADONA [Concomitant]
     Active Substance: CARBAZOCHROME SODIUM SULFONATE
     Dates: start: 20081219, end: 20090225
  18. ALBUMIN [Concomitant]
     Active Substance: ALBUMIN (HUMAN)
     Dates: start: 20081229, end: 20081231
  19. ELPLAT [Suspect]
     Active Substance: OXALIPLATIN
     Indication: RECTAL CANCER
     Dosage: REGIMEN 1
     Route: 041
     Dates: start: 20081204, end: 20081204
  20. 5-FU [Suspect]
     Active Substance: FLUOROURACIL
     Indication: RECTAL CANCER
     Dosage: REGIMEN 9
     Route: 040
     Dates: start: 20090205, end: 20090205
  21. 5-FU [Suspect]
     Active Substance: FLUOROURACIL
     Indication: RECTAL CANCER
     Dosage: REGIMEN 11
     Route: 040
     Dates: start: 20090219, end: 20090219
  22. CALCICOL [Concomitant]
     Active Substance: CALCIUM GLUCONATE
     Dates: start: 20081204, end: 20090219
  23. ISOVORIN [Suspect]
     Active Substance: LEUCOVORIN CALCIUM
     Indication: RECTAL CANCER
     Dosage: REGIMEN 4
     Route: 041
     Dates: start: 20090122, end: 20090122
  24. ELPLAT [Suspect]
     Active Substance: OXALIPLATIN
     Indication: RECTAL CANCER
     Dosage: REGIMEN 3
     Route: 041
     Dates: start: 20090108, end: 20090108
  25. 5-FU [Suspect]
     Active Substance: FLUOROURACIL
     Indication: RECTAL CANCER
     Dosage: REGIMEN 2
     Route: 041
     Dates: start: 20081204, end: 20081204
  26. 5-FU [Suspect]
     Active Substance: FLUOROURACIL
     Indication: RECTAL CANCER
     Dosage: REGIMEN 5
     Route: 040
     Dates: start: 20090108, end: 20090108
  27. 5-FU [Suspect]
     Active Substance: FLUOROURACIL
     Indication: RECTAL CANCER
     Dosage: REGIMEN 12
     Route: 041
     Dates: start: 20090219, end: 20090219
  28. ISOVORIN [Suspect]
     Active Substance: LEUCOVORIN CALCIUM
     Indication: RECTAL CANCER
     Dosage: REGIMEN 3
     Route: 041
     Dates: start: 20090108, end: 20090108
  29. ELPLAT [Suspect]
     Active Substance: OXALIPLATIN
     Indication: RECTAL CANCER
     Dosage: REGIMEN 4
     Route: 041
     Dates: start: 20090122, end: 20090122
  30. 5-FU [Suspect]
     Active Substance: FLUOROURACIL
     Indication: RECTAL CANCER
     Dosage: REGIMEN 6
     Route: 041
     Dates: start: 20090108, end: 20090108
  31. 5-FU [Suspect]
     Active Substance: FLUOROURACIL
     Indication: RECTAL CANCER
     Dosage: REGIMEN 8
     Route: 041
     Dates: start: 20090122, end: 20090122
  32. DECADRON [Concomitant]
     Active Substance: DEXAMETHASONE
     Dates: start: 20081204, end: 20090219
  33. ISOVORIN [Suspect]
     Active Substance: LEUCOVORIN CALCIUM
     Indication: RECTAL CANCER
     Dosage: REGIMEN 1
     Route: 041
     Dates: start: 20081204, end: 20081204
  34. ELPLAT [Suspect]
     Active Substance: OXALIPLATIN
     Indication: RECTAL CANCER
     Dosage: REGIMEN 1
     Route: 041
     Dates: start: 20090219, end: 20090219

REACTIONS (6)
  - Septic shock [Fatal]
  - Neutrophil count decreased [Fatal]
  - White blood cell count decreased [Fatal]
  - Platelet count decreased [Not Recovered/Not Resolved]
  - Neuropathy peripheral [Unknown]
  - Haemoglobin decreased [Not Recovered/Not Resolved]

NARRATIVE: CASE EVENT DATE: 20081206
